FAERS Safety Report 14324788 (Version 5)
Quarter: 2019Q2

REPORT INFORMATION
  Report Type: Spontaneous
  Country: US (occurrence: US)
  Receive Date: 20171226
  Receipt Date: 20190627
  Transmission Date: 20190711
  Serious: Yes (Hospitalization)
  Sender: FDA-Public Use
  Company Number: US-DSJP-DSU-2017-140574

PATIENT

DRUGS (3)
  1. BENICAR [Suspect]
     Active Substance: OLMESARTAN MEDOXOMIL
     Indication: BLOOD PRESSURE MEASUREMENT
     Dosage: 40 MG, QD
     Route: 048
     Dates: start: 2002
  2. BENICAR HCT [Suspect]
     Active Substance: HYDROCHLOROTHIAZIDE\OLMESARTAN MEDOXOMIL
     Dosage: UNK
     Dates: end: 20110424
  3. BENICAR HCT [Suspect]
     Active Substance: HYDROCHLOROTHIAZIDE\OLMESARTAN MEDOXOMIL
     Indication: BLOOD PRESSURE MEASUREMENT
     Dosage: 20/12.5 MG, QD
     Route: 048
     Dates: end: 20130708

REACTIONS (11)
  - Haemorrhoids [Not Recovered/Not Resolved]
  - Irritable bowel syndrome [Unknown]
  - Dizziness [Unknown]
  - Hiatus hernia [Not Recovered/Not Resolved]
  - Rectal polyp [Recovered/Resolved]
  - Barrett^s oesophagus [Not Recovered/Not Resolved]
  - Sprue-like enteropathy [Recovering/Resolving]
  - Large intestine polyp [Not Recovered/Not Resolved]
  - Diverticulum intestinal [Not Recovered/Not Resolved]
  - Gastrooesophageal reflux disease [Recovering/Resolving]
  - Coeliac disease [Recovered/Resolved]

NARRATIVE: CASE EVENT DATE: 20030101
